FAERS Safety Report 16508151 (Version 1)
Quarter: 2019Q3

REPORT INFORMATION
  Report Type: Spontaneous
  Country: US (occurrence: US)
  Receive Date: 20190702
  Receipt Date: 20190702
  Transmission Date: 20191004
  Serious: No
  Sender: FDA-Public Use
  Company Number: US-ROCHE-2125175

PATIENT
  Sex: Male
  Weight: 99.88 kg

DRUGS (2)
  1. XELODA [Suspect]
     Active Substance: CAPECITABINE
     Route: 042
     Dates: start: 201803
  2. XELODA [Suspect]
     Active Substance: CAPECITABINE
     Indication: OESOPHAGEAL CARCINOMA
     Dosage: 3 PILLS
     Route: 048
     Dates: start: 20180226

REACTIONS (3)
  - Off label use [Unknown]
  - Dysphagia [Unknown]
  - Intentional product use issue [Unknown]
